FAERS Safety Report 7956415-8 (Version None)
Quarter: 2011Q4

REPORT INFORMATION
  Report Type: 
  Country: None (occurrence: None)
  Receive Date: 20111205
  Receipt Date: 20111122
  Transmission Date: 20120403
  Serious: Yes (Hospitalization)
  Sender: FDA-Public Use
  Company Number: SG-JNJFOC-20110504818

PATIENT
  Sex: Male
  Weight: 59 kg

DRUGS (4)
  1. ABIRATERONE ACETATE [Suspect]
     Route: 048
  2. GOSERELIN [Concomitant]
     Indication: HORMONE THERAPY
     Route: 065
     Dates: start: 20020301
  3. ABIRATERONE ACETATE [Suspect]
     Indication: PROSTATE CANCER METASTATIC
     Route: 048
     Dates: start: 20110318, end: 20110505
  4. PREDNISOLONE [Suspect]
     Indication: PROSTATE CANCER METASTATIC
     Route: 048
     Dates: start: 20110318

REACTIONS (1)
  - DEHYDRATION [None]
